FAERS Safety Report 18806801 (Version 1)
Quarter: 2021Q1

REPORT INFORMATION
  Report Type: Spontaneous
  Country: US (occurrence: US)
  Receive Date: 20210128
  Receipt Date: 20210128
  Transmission Date: 20210419
  Serious: No
  Sender: FDA-Public Use
  Company Number: None

PATIENT
  Age: 62 Year
  Sex: Male
  Weight: 129 kg

DRUGS (1)
  1. SEMAGLUTIDE (SEMAGLUTIDE 1MG/0.75ML INJ, SOLN, PEN, 1.5ML) [Suspect]
     Active Substance: SEMAGLUTIDE
     Indication: DIABETES MELLITUS
     Route: 058
     Dates: start: 20200503, end: 20200904

REACTIONS (3)
  - Vomiting [None]
  - Abdominal discomfort [None]
  - Nausea [None]

NARRATIVE: CASE EVENT DATE: 20200904
